FAERS Safety Report 20133238 (Version 2)
Quarter: 2022Q1

REPORT INFORMATION
  Report Type: Report from Study
  Country: US (occurrence: US)
  Receive Date: 20211201
  Receipt Date: 20220209
  Transmission Date: 20220423
  Serious: No
  Sender: FDA-Public Use
  Company Number: US-NOVARTISTESTPH-NVSC2021US273412

PATIENT
  Sex: Female

DRUGS (2)
  1. COSENTYX [Suspect]
     Active Substance: SECUKINUMAB
     Indication: Psoriasis
     Dosage: 300 MG, QMO
     Route: 058
  2. COSENTYX [Suspect]
     Active Substance: SECUKINUMAB
     Indication: Psoriatic arthropathy
     Dosage: UNK UNK, UNKNOWN
     Route: 065
     Dates: start: 20220201

REACTIONS (8)
  - Pyrexia [Recovering/Resolving]
  - Headache [Recovering/Resolving]
  - Chills [Recovering/Resolving]
  - Oropharyngeal pain [Recovering/Resolving]
  - Musculoskeletal stiffness [Not Recovered/Not Resolved]
  - Inappropriate schedule of product administration [Unknown]
  - Drug ineffective [Not Recovered/Not Resolved]
  - Diarrhoea [Recovering/Resolving]
